FAERS Safety Report 7321299-8 (Version None)
Quarter: 2011Q1

REPORT INFORMATION
  Report Type: 
  Country: None (occurrence: None)
  Receive Date: 20110228
  Receipt Date: 20100324
  Transmission Date: 20110831
  Serious: No
  Sender: FDA-Public Use
  Company Number: US-PFIZER INC-2010039805

PATIENT
  Sex: Female

DRUGS (2)
  1. GEODON [Suspect]
     Dosage: 80 MG DAILY
  2. SEROQUEL [Concomitant]
     Dosage: 100 MG, 2X/DAY

REACTIONS (2)
  - EUPHORIC MOOD [None]
  - FATIGUE [None]
